FAERS Safety Report 6302235-X (Version None)
Quarter: 2009Q3

REPORT INFORMATION
  Report Type: 
  Country: None (occurrence: None)
  Receive Date: 20090810
  Receipt Date: 20090729
  Transmission Date: 20100115
  Serious: Yes (Hospitalization)
  Sender: FDA-Public Use
  Company Number: JP-BIOGENIDEC-2009BI024471

PATIENT
  Age: 57 Year
  Sex: Male

DRUGS (11)
  1. AVONEX [Suspect]
     Indication: SECONDARY PROGRESSIVE MULTIPLE SCLEROSIS
     Route: 030
     Dates: start: 20080326
  2. SELBEX [Concomitant]
     Dates: start: 20070424
  3. TEGRETOL [Concomitant]
     Dates: start: 20070619, end: 20090108
  4. LIORESAL [Concomitant]
     Dates: start: 20070627, end: 20080710
  5. UROSULOL [Concomitant]
     Indication: DRUG USE FOR UNKNOWN INDICATION
     Dates: start: 20070814, end: 20080710
  6. RHYTHMY [Concomitant]
     Dates: start: 20070814
  7. ARICEPT [Concomitant]
     Dates: start: 20070904, end: 20080710
  8. NAPROXEN [Concomitant]
     Indication: DRUG USE FOR UNKNOWN INDICATION
     Dates: start: 20080611
  9. RIVOTRIL [Concomitant]
     Dates: start: 20081001, end: 20081105
  10. DIOVAN [Concomitant]
     Dates: start: 20090107
  11. MICARDIS [Concomitant]
     Dates: start: 20090401

REACTIONS (2)
  - GASTRIC ULCER HAEMORRHAGE [None]
  - PYREXIA [None]
